FAERS Safety Report 9446008 (Version 1)
Quarter: 2013Q3

REPORT INFORMATION
  Report Type: Spontaneous
  Country: AU (occurrence: AU)
  Receive Date: 20130807
  Receipt Date: 20130807
  Transmission Date: 20140515
  Serious: Yes (Disabling)
  Sender: FDA-Public Use
  Company Number: AU-B.I. PHARMACEUTICALS,INC./RIDGEFIELD-2013-AU-00913AU

PATIENT
  Age: 83 Year
  Sex: Female
  Weight: 62 kg

DRUGS (9)
  1. PRADAXA [Suspect]
     Indication: ATRIAL FIBRILLATION
     Dosage: 220 MG
     Dates: start: 20130712, end: 20130724
  2. ZANIDIP [Concomitant]
  3. SYMBICORT [Concomitant]
     Dosage: 1 PUFF BD
  4. LASIX [Concomitant]
  5. MAGMIN [Concomitant]
  6. VITAMIN B12 [Concomitant]
     Route: 060
  7. VYTORIN [Concomitant]
  8. GLICLAZIDE [Concomitant]
  9. VITAMIN D [Concomitant]

REACTIONS (4)
  - Contusion [Not Recovered/Not Resolved]
  - Epistaxis [Not Recovered/Not Resolved]
  - Arthralgia [Not Recovered/Not Resolved]
  - Malaise [Not Recovered/Not Resolved]
